FAERS Safety Report 13367086 (Version 2)
Quarter: 2017Q2

REPORT INFORMATION
  Report Type: Spontaneous
  Country: IN (occurrence: IN)
  Receive Date: 20170324
  Receipt Date: 20170412
  Transmission Date: 20170830
  Serious: Yes (Hospitalization)
  Sender: FDA-Public Use
  Company Number: IN-CONCORDIA PHARMACEUTICALS INC.-GSH201703-001896

PATIENT
  Age: 50 Year
  Sex: Female

DRUGS (4)
  1. HYDROXYCHLOROQUINE [Suspect]
     Active Substance: HYDROXYCHLOROQUINE
     Indication: SYSTEMIC LUPUS ERYTHEMATOSUS
     Route: 065
  2. METHOTREXATE. [Concomitant]
     Active Substance: METHOTREXATE
     Indication: SYSTEMIC LUPUS ERYTHEMATOSUS
  3. PREDNISOLONE. [Concomitant]
     Active Substance: PREDNISOLONE
  4. PREDNISOLONE. [Concomitant]
     Active Substance: PREDNISOLONE
     Indication: SYSTEMIC LUPUS ERYTHEMATOSUS

REACTIONS (11)
  - Rash erythematous [Recovered/Resolved]
  - Biopsy skin abnormal [Recovered/Resolved]
  - Skin lesion [Recovered/Resolved]
  - Parakeratosis [Recovered/Resolved]
  - Nail ridging [Recovered/Resolved]
  - Lymphocytic infiltration [Recovered/Resolved]
  - Pruritus generalised [Recovered/Resolved]
  - Dermatitis exfoliative [Recovered/Resolved]
  - Skin exfoliation [Recovered/Resolved]
  - Skin plaque [Recovered/Resolved]
  - Erythema [Recovered/Resolved]
